FAERS Safety Report 7884666-X (Version None)
Quarter: 2011Q4

REPORT INFORMATION
  Report Type: 
  Country: None (occurrence: None)
  Receive Date: 20111102
  Receipt Date: 20111027
  Transmission Date: 20120403
  Serious: Yes (Death, Hospitalization)
  Sender: FDA-Public Use
  Company Number: DE-ELI_LILLY_AND_COMPANY-DE201110007149

PATIENT
  Age: 79 Year
  Sex: Male
  Weight: 73 kg

DRUGS (3)
  1. PEMETREXED [Suspect]
     Indication: NON-SMALL CELL LUNG CANCER
     Dosage: 960 MG, 1 IN 21 DAYS
     Route: 042
     Dates: start: 20100112
  2. CARBOPLATIN [Suspect]
     Indication: NON-SMALL CELL LUNG CANCER
     Dosage: 525 MG, 1 IN 21 DAYS
     Route: 042
     Dates: start: 20100112, end: 20100316
  3. BEVACIZUMAB [Suspect]
     Indication: NON-SMALL CELL LUNG CANCER
     Dosage: 530 MG, 1 IN 21 DAYS
     Route: 042
     Dates: start: 20100112

REACTIONS (2)
  - EPISTAXIS [None]
  - PANCYTOPENIA [None]
